FAERS Safety Report 5630168-0 (Version None)
Quarter: 2008Q1

REPORT INFORMATION
  Report Type: 
  Country: None (occurrence: None)
  Receive Date: 20080219
  Receipt Date: 20080208
  Transmission Date: 20080703
  Serious: Yes (Other)
  Sender: FDA-Public Use
  Company Number: US-JNJFOC-20070802493

PATIENT
  Sex: Male
  Weight: 61.24 kg

DRUGS (30)
  1. FENTANYL TRANSDERMAL SYSTEM [Suspect]
     Indication: BACK PAIN
     Route: 062
  2. FENTANYL [Suspect]
     Indication: BACK PAIN
     Route: 062
  3. DURAGESIC-100 [Suspect]
     Route: 062
  4. DURAGESIC-100 [Suspect]
     Route: 062
  5. DURAGESIC-100 [Suspect]
     Indication: BACK PAIN
     Route: 062
  6. DYAZIDE [Concomitant]
     Dosage: 37.5/25
     Route: 065
  7. CELEBREX [Concomitant]
     Route: 065
  8. METHOCARBAMOL [Concomitant]
     Route: 065
  9. DILTIAZEM HCL [Concomitant]
     Route: 065
  10. PRILOSEC [Concomitant]
     Route: 065
  11. MULTI-VITAMIN [Concomitant]
     Route: 048
  12. DILTIAZEM [Concomitant]
     Indication: BLOOD PRESSURE
     Route: 048
  13. NAMENDA [Concomitant]
     Route: 048
  14. NAMENDA [Concomitant]
     Route: 048
  15. NAMENDA [Concomitant]
     Indication: DEMENTIA ALZHEIMER'S TYPE
     Route: 048
  16. ARICEPT [Concomitant]
     Route: 048
  17. ARICEPT [Concomitant]
     Route: 048
  18. ARICEPT [Concomitant]
     Indication: DEMENTIA ALZHEIMER'S TYPE
     Route: 048
  19. LIPITOR [Concomitant]
     Route: 048
  20. LIPITOR [Concomitant]
     Route: 048
  21. CELEBREX [Concomitant]
     Indication: PAIN
     Route: 048
  22. ALPRAZOLAM [Concomitant]
     Indication: ANXIETY
     Route: 048
  23. ZOLOFT [Concomitant]
     Indication: DEPRESSION
     Route: 048
  24. OXYCODONE HCL [Concomitant]
     Route: 048
  25. OXYCODONE HCL [Concomitant]
     Route: 048
  26. OXYCODONE HCL [Concomitant]
     Route: 048
  27. OXYCODONE HCL [Concomitant]
     Route: 048
  28. OXYCODONE HCL [Concomitant]
     Indication: PAIN
     Route: 048
  29. NEXIUM [Concomitant]
     Route: 065
  30. TESTOSTERONE [Concomitant]
     Route: 065

REACTIONS (4)
  - DRUG ADMINISTERED AT INAPPROPRIATE SITE [None]
  - INFECTION [None]
  - PHARMACEUTICAL PRODUCT COMPLAINT [None]
  - WRONG TECHNIQUE IN DRUG USAGE PROCESS [None]
